FAERS Safety Report 4309920-X (Version None)
Quarter: 2004Q1

REPORT INFORMATION
  Report Type: 
  Country: None (occurrence: None)
  Receive Date: 20040303
  Receipt Date: 20040128
  Transmission Date: 20041129
  Serious: No
  Sender: FDA-Public Use
  Company Number: US-BRISTOL-MYERS SQUIBB COMPANY-12489563

PATIENT
  Age: 8 Year
  Sex: Male
  Weight: 56 kg

DRUGS (1)
  1. ABILIFY [Suspect]
     Indication: ATTENTION-SEEKING BEHAVIOUR
     Route: 048
     Dates: start: 20031210, end: 20040120

REACTIONS (2)
  - EXTRAPYRAMIDAL DISORDER [None]
  - RESTLESSNESS [None]
